FAERS Safety Report 22289281 (Version 1)
Quarter: 2023Q2

REPORT INFORMATION
  Report Type: Report from Study
  Country: US (occurrence: US)
  Receive Date: 20230505
  Receipt Date: 20230505
  Transmission Date: 20230721
  Serious: Yes (Other)
  Sender: FDA-Public Use
  Company Number: US-AGIOS-2304US03338

PATIENT
  Sex: Male

DRUGS (2)
  1. MITAPIVAT [Suspect]
     Active Substance: MITAPIVAT
     Indication: Pyruvate kinase deficiency anaemia
     Dosage: 20 MG
     Route: 065
     Dates: start: 20220909
  2. MITAPIVAT [Suspect]
     Active Substance: MITAPIVAT
     Dosage: 5 MG
     Route: 065

REACTIONS (8)
  - Erectile dysfunction [Unknown]
  - Muscle spasms [Unknown]
  - Muscular weakness [Unknown]
  - Anxiety [Unknown]
  - Chest discomfort [Unknown]
  - Dyspnoea [Unknown]
  - Genital hypoaesthesia [Unknown]
  - Feeling abnormal [Unknown]
